FAERS Safety Report 18890145 (Version 6)
Quarter: 2022Q2

REPORT INFORMATION
  Report Type: Spontaneous
  Country: US (occurrence: US)
  Receive Date: 20210214
  Receipt Date: 20220629
  Transmission Date: 20220721
  Serious: Yes (Hospitalization, Other)
  Sender: FDA-Public Use
  Company Number: US-BIOGEN-2021BI00975852

PATIENT
  Age: 43 Year
  Sex: Female

DRUGS (2)
  1. TYSABRI [Suspect]
     Active Substance: NATALIZUMAB
     Indication: Multiple sclerosis
     Route: 065
     Dates: start: 20081027, end: 20211119
  2. TYSABRI [Suspect]
     Active Substance: NATALIZUMAB
     Route: 042
     Dates: start: 20220318

REACTIONS (9)
  - Gastric ulcer haemorrhage [Recovered/Resolved]
  - Infection [Recovered/Resolved with Sequelae]
  - Portal vein thrombosis [Not Recovered/Not Resolved]
  - Haemoglobin decreased [Unknown]
  - Loss of consciousness [Unknown]
  - Multiple sclerosis [Unknown]
  - SARS-CoV-2 test positive [Recovered/Resolved]
  - Infection [Unknown]
  - General physical health deterioration [Unknown]

NARRATIVE: CASE EVENT DATE: 20211101
